FAERS Safety Report 5444877-X (Version None)
Quarter: 2007Q3

REPORT INFORMATION
  Report Type: 
  Country: None (occurrence: None)
  Receive Date: 20070904
  Receipt Date: 20070904
  Transmission Date: 20080115
  Serious: Yes (Hospitalization)
  Sender: FDA-Public Use
  Company Number: None

PATIENT
  Age: 64 Year
  Sex: Male

DRUGS (5)
  1. LISINOPRIL AND HYDROCHLOROTHIAZIDE [Suspect]
     Indication: HYPERTENSION
     Dosage: 20/12.5 MG  DAILY  PO
     Route: 048
  2. TRAMADOL HCL [Concomitant]
  3. ALBUTEROL [Concomitant]
  4. SPIRIVA [Concomitant]
  5. HOME O2 [Concomitant]

REACTIONS (4)
  - ALCOHOL USE [None]
  - ALCOHOLISM [None]
  - HALLUCINATION [None]
  - HYPONATRAEMIA [None]
